FAERS Safety Report 7225080-X (Version None)
Quarter: 2011Q1

REPORT INFORMATION
  Report Type: 
  Country: None (occurrence: None)
  Receive Date: 20110113
  Receipt Date: 20110103
  Transmission Date: 20110831
  Serious: Yes (Other)
  Sender: FDA-Public Use
  Company Number: US-NAPPMUNDI-DEU-2011-0006865

PATIENT
  Age: 9 Year
  Sex: Male

DRUGS (2)
  1. MIDAZOLAM HCL [Concomitant]
  2. HYDROMORPHONE HCL [Suspect]
     Indication: PAIN

REACTIONS (1)
  - HYPERAESTHESIA [None]
